FAERS Safety Report 4847433-7 (Version None)
Quarter: 2005Q4

REPORT INFORMATION
  Report Type: 
  Country: None (occurrence: None)
  Receive Date: 20051205
  Receipt Date: 20051123
  Transmission Date: 20060501
  Serious: Yes (Hospitalization, Other)
  Sender: FDA-Public Use
  Company Number: 2005161267

PATIENT
  Sex: Male
  Weight: 68.0396 kg

DRUGS (6)
  1. GABAPENTIN [Suspect]
     Indication: ILL-DEFINED DISORDER
     Dosage: 1200 MG (400 MG, 3 IN 1 D)
  2. CLONIDINE [Concomitant]
  3. SPIRIVA [Concomitant]
  4. AZMACORT [Concomitant]
  5. ALBUTEROL [Concomitant]
  6. EFFEXOR [Concomitant]

REACTIONS (2)
  - CONVULSION [None]
  - NERVOUS SYSTEM DISORDER [None]
